FAERS Safety Report 18100931 (Version 1)
Quarter: 2020Q3

REPORT INFORMATION
  Report Type: Spontaneous
  Country: US (occurrence: US)
  Receive Date: 20200801
  Receipt Date: 20200801
  Transmission Date: 20201103
  Serious: No
  Sender: FDA-Public Use
  Company Number: US-AUROBINDO-AUR-APL-2019-057411

PATIENT
  Age: 70 Year
  Sex: Female

DRUGS (1)
  1. RAMIPRIL CAPSULES USP 5MG [Suspect]
     Active Substance: RAMIPRIL
     Indication: PRODUCT USED FOR UNKNOWN INDICATION
     Dosage: UNK
     Route: 065

REACTIONS (4)
  - Discomfort [Recovered/Resolved]
  - Illness [Recovered/Resolved]
  - Drug hypersensitivity [Recovered/Resolved]
  - Heart rate abnormal [Recovered/Resolved]
